FAERS Safety Report 12551690 (Version 1)
Quarter: 2016Q3

REPORT INFORMATION
  Report Type: Report from Study
  Country: BR (occurrence: BR)
  Receive Date: 20160713
  Receipt Date: 20160713
  Transmission Date: 20161109
  Serious: Yes (Other)
  Sender: FDA-Public Use
  Company Number: PHHY2016BR088660

PATIENT
  Sex: Female
  Weight: 50 kg

DRUGS (3)
  1. EXJADE [Suspect]
     Active Substance: DEFERASIROX
     Indication: THALASSAEMIA
     Dosage: 1 DF BID (500 MG IN THE MORNING AND 500 MG IN THE AFTERNOON)
     Route: 048
     Dates: end: 2014
  2. EXJADE [Suspect]
     Active Substance: DEFERASIROX
     Dosage: 250 MG, (250 MG 2 TABLET)
     Route: 048
     Dates: start: 2014
  3. EXJADE [Suspect]
     Active Substance: DEFERASIROX
     Indication: SICKLE CELL ANAEMIA
     Dosage: 1000 MG (20 MG/KG), QD
     Route: 048
     Dates: start: 2012

REACTIONS (9)
  - Serum ferritin increased [Unknown]
  - Dizziness [Unknown]
  - Insomnia [Unknown]
  - Fluid retention [Unknown]
  - Malaise [Unknown]
  - Decreased appetite [Unknown]
  - Haemoglobin decreased [Unknown]
  - Vomiting [Unknown]
  - Inappropriate schedule of drug administration [Unknown]
